FAERS Safety Report 4939229-2 (Version None)
Quarter: 2006Q1

REPORT INFORMATION
  Report Type: 
  Country: None (occurrence: None)
  Receive Date: 20060306
  Receipt Date: 20060217
  Transmission Date: 20060701
  Serious: Yes (Other)
  Sender: FDA-Public Use
  Company Number: SG200602001179

PATIENT
  Age: 10 Year
  Sex: Male
  Weight: 41.5 kg

DRUGS (1)
  1. STRATTERA [Suspect]
     Indication: ATTENTION DEFICIT/HYPERACTIVITY DISORDER
     Dosage: 10 MG, EACH MORNING, ORAL
     Route: 048
     Dates: start: 20051206

REACTIONS (2)
  - DRY MOUTH [None]
  - YELLOW SKIN [None]
